FAERS Safety Report 10449114 (Version 1)
Quarter: 2014Q3

REPORT INFORMATION
  Report Type: Spontaneous
  Country: US (occurrence: None)
  Receive Date: 20140911
  Receipt Date: 20140911
  Transmission Date: 20150326
  Serious: Yes (Other)
  Sender: FDA-Public Use
  Company Number: None

PATIENT
  Age: 75 Year
  Sex: Female

DRUGS (1)
  1. LEVOTHYROXINE SODIUM. [Suspect]
     Active Substance: LEVOTHYROXINE SODIUM
     Indication: HYPOTHYROIDISM
     Dosage: 1 TAB, QD, ORAL
     Route: 048
     Dates: start: 20140801, end: 20140901

REACTIONS (2)
  - Product substitution issue [None]
  - Rash [None]

NARRATIVE: CASE EVENT DATE: 20140901
